FAERS Safety Report 8816929 (Version 1)
Quarter: 2012Q4

REPORT INFORMATION
  Report Type: Spontaneous
  Country: US (occurrence: None)
  Receive Date: 20121002
  Receipt Date: 20121002
  Transmission Date: 20130627
  Serious: No
  Sender: FDA-Public Use
  Company Number: None

PATIENT
  Age: 3 Year
  Sex: Female
  Weight: 14.97 kg

DRUGS (2)
  1. SINGULAIR [Suspect]
     Indication: COUGH
     Dates: start: 20100401, end: 20120913
  2. SINGULAIR [Suspect]
     Indication: POSTNASAL DRIP
     Dates: start: 20100401, end: 20120913

REACTIONS (3)
  - Fear [None]
  - Onychophagia [None]
  - Haemorrhage [None]
